FAERS Safety Report 24173436 (Version 1)
Quarter: 2024Q3

REPORT INFORMATION
  Report Type: Spontaneous
  Country: FI (occurrence: FI)
  Receive Date: 20240805
  Receipt Date: 20240805
  Transmission Date: 20241017
  Serious: Yes (Hospitalization, Other)
  Sender: CHEPLAPHARM
  Company Number: FI-MYLANLABS-2024M1045928

PATIENT
  Age: 16 Year
  Sex: Female

DRUGS (3)
  1. OLANZAPINE [Suspect]
     Active Substance: OLANZAPINE
     Indication: Product used for unknown indication
     Dosage: UNK
  2. CLOZAPINE [Suspect]
     Active Substance: CLOZAPINE
     Indication: Major depression
     Dosage: 250 MILLIGRAM, QD (START DATE: 2024, STARTED COUPLE OF MONTHS AGO)/LEPONEX ALOITETTU 28.2. JA NOS...
     Route: 048
     Dates: start: 20240228, end: 20240514
  3. VENLAFAXINE [Concomitant]
     Active Substance: VENLAFAXINE HYDROCHLORIDE

REACTIONS (4)
  - Agranulocytosis [Recovered/Resolved]
  - Infection [Recovered/Resolved]
  - White blood cell count decreased [Recovered/Resolved]
  - Neutropenia [Recovered/Resolved]

NARRATIVE: CASE EVENT DATE: 20240514
